FAERS Safety Report 7309364-2 (Version None)
Quarter: 2011Q1

REPORT INFORMATION
  Report Type: 
  Country: None (occurrence: None)
  Receive Date: 20110223
  Receipt Date: 20110107
  Transmission Date: 20110831
  Serious: Yes (Other)
  Sender: FDA-Public Use
  Company Number: PHHY2010JP88298

PATIENT
  Age: 50 Year
  Sex: Female

DRUGS (7)
  1. NAFAMOSTAT MESILATE [Concomitant]
  2. TACROLIMUS [Concomitant]
     Indication: LIVER TRANSPLANT
  3. SIMULECT [Suspect]
     Indication: LIVER TRANSPLANT
     Route: 042
  4. RITUXIMAB [Concomitant]
     Indication: LIVER TRANSPLANT
     Dosage: 500 MG/ BODY
  5. PROSTAGLANDIN E2 [Concomitant]
  6. CICLOSPORIN [Suspect]
     Indication: LIVER TRANSPLANT
  7. CELLCEPT [Concomitant]
     Indication: LIVER TRANSPLANT

REACTIONS (5)
  - PLATELET COUNT DECREASED [None]
  - LIVER DISORDER [None]
  - THROMBOTIC MICROANGIOPATHY [None]
  - HYPERBILIRUBINAEMIA [None]
  - ABDOMINAL WALL HAEMORRHAGE [None]
